FAERS Safety Report 9027949 (Version 1)
Quarter: 2013Q1

REPORT INFORMATION
  Report Type: Spontaneous
  Country: US (occurrence: None)
  Receive Date: 20130114
  Receipt Date: 20130114
  Transmission Date: 20140127
  Serious: Yes (Hospitalization)
  Sender: FDA-Public Use
  Company Number: None

PATIENT
  Age: 56 Year
  Sex: Male
  Weight: 106.5 kg

DRUGS (10)
  1. TEMODAR [Suspect]
     Indication: GLIOBLASTOMA MULTIFORME
     Dosage: TEMODAR 5 DAYS Q MONTH ORAL
     Route: 048
     Dates: start: 201201
  2. ARSENIC TRIOXIDE [Suspect]
     Indication: GLIOBLASTOMA MULTIFORME
     Dosage: ARSENIC TRIOXIDE WEEKLY X 7 WEEKS IV
     Route: 042
     Dates: start: 201201, end: 201203
  3. CLONAZEPAM [Concomitant]
  4. GABEPENTIN [Concomitant]
  5. NORCO [Concomitant]
  6. KEPPRA [Concomitant]
  7. SKELAXIN [Concomitant]
  8. RESTORIL [Concomitant]
  9. DECADRON [Concomitant]
  10. LEXAPRO [Concomitant]

REACTIONS (2)
  - Pulmonary embolism [None]
  - Deep vein thrombosis [None]
